FAERS Safety Report 25216414 (Version 1)
Quarter: 2025Q2

REPORT INFORMATION
  Report Type: Report from Study
  Country: US (occurrence: US)
  Receive Date: 20250418
  Receipt Date: 20250418
  Transmission Date: 20250716
  Serious: Yes (Other)
  Sender: ROCHE
  Company Number: US-ROCHE-10000251960

PATIENT
  Age: 25 Year
  Sex: Female
  Weight: 117.93 kg

DRUGS (3)
  1. RITUXIMAB [Suspect]
     Active Substance: RITUXIMAB
     Indication: Non-Hodgkin^s lymphoma stage IV
     Route: 042
     Dates: start: 201903, end: 201909
  2. OCREVUS [Concomitant]
     Active Substance: OCRELIZUMAB
     Indication: Relapsing-remitting multiple sclerosis
     Dosage: ANTICIPATED TREATMENT DATE: 15-APR-2025, ACTUAL TREATMENT DATE: 15-OCT-2024
     Route: 042
     Dates: start: 20240924
  3. BENADRYL [Concomitant]
     Active Substance: DIPHENHYDRAMINE HYDROCHLORIDE

REACTIONS (1)
  - Drug hypersensitivity [Not Recovered/Not Resolved]
